FAERS Safety Report 9614500 (Version 1)
Quarter: 2013Q4

REPORT INFORMATION
  Report Type: Spontaneous
  Country: BE (occurrence: BE)
  Receive Date: 20131011
  Receipt Date: 20131011
  Transmission Date: 20140711
  Serious: Yes (Hospitalization)
  Sender: FDA-Public Use
  Company Number: BE-UCBSA-099464

PATIENT
  Sex: Male

DRUGS (1)
  1. KEPPRA [Suspect]
     Route: 048
     Dates: start: 201309

REACTIONS (1)
  - Pyrexia [Not Recovered/Not Resolved]
